FAERS Safety Report 7085027-6 (Version None)
Quarter: 2010Q4

REPORT INFORMATION
  Report Type: 
  Country: None (occurrence: None)
  Receive Date: 20101105
  Receipt Date: 20101025
  Transmission Date: 20110411
  Serious: Yes (Other)
  Sender: FDA-Public Use
  Company Number: CA-JNJFOC-20100507753

PATIENT
  Sex: Male
  Weight: 77.5 kg

DRUGS (10)
  1. REMICADE [Suspect]
     Indication: FISTULA
     Dosage: 16TH INFUSION
     Route: 042
  2. REMICADE [Suspect]
     Route: 042
  3. REMICADE [Suspect]
     Indication: CROHN'S DISEASE
     Dosage: 16TH INFUSION
     Route: 042
  4. REMICADE [Suspect]
     Route: 042
  5. PENTASA [Concomitant]
     Route: 048
  6. MESALAMINE [Concomitant]
     Route: 054
  7. ADVIL [Concomitant]
  8. TYLENOL W/ CODEINE NO. 3 [Concomitant]
  9. ACETAMINOPHEN [Concomitant]
     Indication: PREMEDICATION
     Route: 048
  10. HYDROCORTISONE [Concomitant]
     Indication: PREMEDICATION
     Route: 042

REACTIONS (5)
  - ABSCESS [None]
  - ANAL FISTULA [None]
  - ARTHRALGIA [None]
  - FATIGUE [None]
  - WEIGHT DECREASED [None]
